FAERS Safety Report 10276812 (Version 2)
Quarter: 2014Q3

REPORT INFORMATION
  Report Type: Spontaneous
  Country: ES (occurrence: ES)
  Receive Date: 20140703
  Receipt Date: 20140707
  Transmission Date: 20150326
  Serious: Yes (Other)
  Sender: FDA-Public Use
  Company Number: ES-009507513-1406ESP012320

PATIENT
  Age: 62 Year
  Sex: Male

DRUGS (8)
  1. VICTRELIS [Suspect]
     Active Substance: BOCEPREVIR
     Indication: HEPATITIS C
     Dosage: 800 MG, TID
     Route: 048
     Dates: start: 20121112, end: 201302
  2. REBETOL [Suspect]
     Active Substance: RIBAVIRIN
     Dosage: DAILY DOSE 600MG, BID
     Route: 048
     Dates: start: 201212
  3. ATORVASTATIN [Concomitant]
     Active Substance: ATORVASTATIN
     Dosage: 10MG /DAY
  4. AMILORIDE HYDROCHLORIDE (+) HYDROCHLOROTHIAZIDE [Concomitant]
     Active Substance: AMILORIDE HYDROCHLORIDE\HYDROCHLOROTHIAZIDE
     Dosage: 1/2TABLET/ DAY
  5. PEGINTRON [Suspect]
     Active Substance: PEGINTERFERON ALFA-2B
     Dosage: 80 UG/WEEK
     Route: 058
     Dates: start: 201301, end: 201303
  6. PEGINTRON [Suspect]
     Active Substance: PEGINTERFERON ALFA-2B
     Dosage: 50 UG/WEEK
     Route: 058
     Dates: start: 201303
  7. PEGINTRON [Suspect]
     Active Substance: PEGINTERFERON ALFA-2B
     Indication: HEPATITIS C
     Dosage: 100UG/WEEK
     Route: 058
     Dates: start: 20121016, end: 201301
  8. REBETOL [Suspect]
     Active Substance: RIBAVIRIN
     Indication: HEPATITIS C
     Dosage: 400 MG, BID
     Route: 048
     Dates: start: 20121016, end: 201212

REACTIONS (15)
  - Dysgeusia [Recovering/Resolving]
  - Dyspepsia [Recovering/Resolving]
  - Pruritus [Recovering/Resolving]
  - Dyspnoea exertional [Recovering/Resolving]
  - Decreased appetite [Recovering/Resolving]
  - Transfusion [Unknown]
  - Asthenia [Recovering/Resolving]
  - Skin ulcer [Recovering/Resolving]
  - Neutropenia [Recovering/Resolving]
  - Transfusion [Unknown]
  - Transfusion [Unknown]
  - Insomnia [Recovering/Resolving]
  - Anaemia [Recovering/Resolving]
  - Transfusion [Unknown]
  - Weight decreased [Recovering/Resolving]

NARRATIVE: CASE EVENT DATE: 2012
